FAERS Safety Report 8469401-9 (Version None)
Quarter: 2012Q2

REPORT INFORMATION
  Report Type: 
  Country: None (occurrence: None)
  Receive Date: 20120626
  Receipt Date: 20120618
  Transmission Date: 20120825
  Serious: Yes (Hospitalization)
  Sender: FDA-Public Use
  Company Number: US-FRI-1000031496

PATIENT
  Sex: Female
  Weight: 41.7 kg

DRUGS (10)
  1. CENTRUM [Concomitant]
     Indication: MEDICAL DIET
     Dosage: 1 DOSAGE FORMS
     Route: 048
     Dates: start: 20090401
  2. NAMENDA [Suspect]
     Indication: DEMENTIA ALZHEIMER'S TYPE
     Dosage: 20 MG
     Route: 048
     Dates: start: 20090610, end: 20110801
  3. OMEPRAZOLE [Concomitant]
     Indication: GASTROOESOPHAGEAL REFLUX DISEASE
     Dosage: 20 MG
     Route: 048
     Dates: start: 20050101
  4. METFORMIN HCL [Concomitant]
     Indication: DIABETES MELLITUS
     Dosage: 1000 MG
     Route: 048
     Dates: start: 20020101
  5. RAMIPRIL [Concomitant]
     Indication: HYPERTENSION
     Dosage: 2.5  MG
     Route: 048
     Dates: start: 20090401
  6. BAPINEUZUMAB VS PLACEBO [Suspect]
     Indication: DEMENTIA ALZHEIMER'S TYPE
     Route: 042
     Dates: start: 20100909, end: 20110826
  7. ASPIRIN [Concomitant]
     Indication: CARDIOVASCULAR EVENT PROPHYLAXIS
     Dosage: 81MG
     Route: 048
     Dates: start: 20080601
  8. LEXAPRO [Suspect]
     Indication: DEPRESSION
     Dosage: 10 MG
     Route: 048
     Dates: start: 20080501, end: 20111001
  9. SIMVASTATIN [Concomitant]
     Indication: HYPERCHOLESTEROLAEMIA
     Dosage: 40 MG
     Route: 048
     Dates: start: 20050101, end: 20110801
  10. EXELON [Concomitant]
     Indication: DEMENTIA ALZHEIMER'S TYPE
     Dosage: 9.5 MG
     Route: 062
     Dates: start: 20090610, end: 20110801

REACTIONS (4)
  - DRUG INEFFECTIVE [None]
  - DEHYDRATION [None]
  - MENTAL STATUS CHANGES [None]
  - ANAEMIA [None]
